FAERS Safety Report 19824907 (Version 1)
Quarter: 2021Q3

REPORT INFORMATION
  Report Type: Spontaneous
  Country: US (occurrence: US)
  Receive Date: 20210913
  Receipt Date: 20210913
  Transmission Date: 20211014
  Serious: Yes (Other)
  Sender: FDA-Public Use
  Company Number: None

PATIENT
  Age: 51 Year
  Sex: Female
  Weight: 87.3 kg

DRUGS (1)
  1. DOTTI [Suspect]
     Active Substance: ESTRADIOL
     Indication: AUTONOMIC NERVOUS SYSTEM IMBALANCE
     Dosage: ?          OTHER FREQUENCY:TWICE WEEKLY;?
     Route: 062
     Dates: start: 20210721, end: 20210913

REACTIONS (3)
  - Application site erythema [None]
  - Product quality issue [None]
  - Application site burn [None]

NARRATIVE: CASE EVENT DATE: 20210913
